FAERS Safety Report 7386152-2 (Version None)
Quarter: 2011Q1

REPORT INFORMATION
  Report Type: 
  Country: None (occurrence: None)
  Receive Date: 20110323
  Receipt Date: 20110314
  Transmission Date: 20110831
  Serious: Yes (Hospitalization, Other)
  Sender: FDA-Public Use
  Company Number: 2010SP049129

PATIENT
  Age: 67 Year
  Sex: Male

DRUGS (4)
  1. PARACETAMOL [Concomitant]
  2. DIAZEPAM [Concomitant]
  3. TRAMADOL [Concomitant]
  4. ZISPIN (MIRTAZAPINE /01293201/) [Suspect]
     Indication: DEPRESSION
     Dosage: 45 MG, QPM, PO
     Route: 048
     Dates: start: 20100817, end: 20100913

REACTIONS (3)
  - LUNG CONSOLIDATION [None]
  - PLEURAL EFFUSION [None]
  - PERICARDIAL EFFUSION [None]
